FAERS Safety Report 18242551 (Version 2)
Quarter: 2020Q3

REPORT INFORMATION
  Report Type: Report from Study
  Country: IT (occurrence: IT)
  Receive Date: 20200908
  Receipt Date: 20200930
  Transmission Date: 20201103
  Serious: Yes (Disabling)
  Sender: FDA-Public Use
  Company Number: IT-CELGENEUS-ITA-20200900388

PATIENT
  Age: 76 Year
  Sex: Male

DRUGS (6)
  1. CARDIOASA [Concomitant]
     Indication: THROMBOSIS PROPHYLAXIS
     Dosage: 100 MILLIGRAM
     Route: 048
     Dates: start: 20110922
  2. RATACAND [Concomitant]
     Active Substance: CANDESARTAN
     Indication: BRONCHOPULMONARY ASPERGILLOSIS
     Dosage: 16+12.5MG
     Route: 048
     Dates: start: 2005
  3. DIBASE [Concomitant]
     Active Substance: CHOLECALCIFEROL
     Indication: VITAMIN SUPPLEMENTATION
     Dosage: 40 DROPS
     Route: 048
     Dates: start: 20110120
  4. LENALIDOMIDE [Suspect]
     Active Substance: LENALIDOMIDE
     Indication: PLASMA CELL MYELOMA
     Dosage: 10 MILLIGRAM
     Route: 048
     Dates: start: 20110923, end: 20200820
  5. DUROGESIC [Concomitant]
     Active Substance: FENTANYL
     Indication: BACK PAIN
     Dosage: 50 MICROGRAM
     Route: 062
     Dates: start: 20101223
  6. LASIX [Concomitant]
     Active Substance: FUROSEMIDE
     Indication: PROPHYLAXIS
     Dosage: 30 MILLIGRAM
     Route: 048
     Dates: start: 20110103

REACTIONS (1)
  - Non-small cell lung cancer metastatic [Not Recovered/Not Resolved]

NARRATIVE: CASE EVENT DATE: 20200810
